FAERS Safety Report 23876600 (Version 2)
Quarter: 2024Q2

REPORT INFORMATION
  Report Type: Spontaneous
  Country: US (occurrence: US)
  Receive Date: 20240521
  Receipt Date: 20240529
  Transmission Date: 20240716
  Serious: Yes (Hospitalization)
  Sender: FDA-Public Use
  Company Number: US-JNJFOC-20240542747

PATIENT
  Age: 34 Year
  Sex: Female

DRUGS (2)
  1. OPSUMIT [Suspect]
     Active Substance: MACITENTAN
     Indication: Product used for unknown indication
     Route: 048
     Dates: start: 20240118, end: 20240514
  2. UPTRAVI [Suspect]
     Active Substance: SELEXIPAG
     Indication: Pulmonary arterial hypertension
     Route: 048
     Dates: start: 202405

REACTIONS (7)
  - Fluid retention [Unknown]
  - Nausea [Unknown]
  - Headache [Unknown]
  - Paraesthesia oral [Unknown]
  - Flushing [Unknown]
  - Chest pain [Unknown]
  - Oedema [Unknown]

NARRATIVE: CASE EVENT DATE: 20240501
